FAERS Safety Report 15761772 (Version 3)
Quarter: 2019Q1

REPORT INFORMATION
  Report Type: Report from Study
  Country: PL (occurrence: PL)
  Receive Date: 20181226
  Receipt Date: 20190128
  Transmission Date: 20190417
  Serious: Yes (Other)
  Sender: FDA-Public Use
  Company Number: PL-CHIESI USA, INC.-PL-2018CHI000582

PATIENT

DRUGS (3)
  1. CAFFEINE CITRATE. [Concomitant]
     Active Substance: CAFFEINE CITRATE
     Indication: APNOEA
     Dosage: 20 MG/KG, QD
     Dates: start: 20181211, end: 20181220
  2. CUROSURF [Suspect]
     Active Substance: PORACTANT ALFA
     Indication: NEONATAL RESPIRATORY DISTRESS SYNDROME
     Dosage: 6 ML, SINGLE
     Route: 039
     Dates: start: 20181211, end: 20181211
  3. KETAMINE [Concomitant]
     Active Substance: KETAMINE
     Indication: PRODUCT USED FOR UNKNOWN INDICATION
     Dosage: 2 MG/KG, QD
     Dates: start: 20181211, end: 20181211

REACTIONS (1)
  - Neonatal hypoxia [Recovered/Resolved]

NARRATIVE: CASE EVENT DATE: 20181211
